FAERS Safety Report 8201181-4 (Version None)
Quarter: 2012Q1

REPORT INFORMATION
  Report Type: 
  Country: None (occurrence: None)
  Receive Date: 20120312
  Receipt Date: 20120302
  Transmission Date: 20120608
  Serious: Yes (Hospitalization)
  Sender: FDA-Public Use
  Company Number: PHHO2011RU11147

PATIENT
  Sex: Male
  Weight: 100.5 kg

DRUGS (3)
  1. AVASTIN [Suspect]
     Indication: METASTATIC RENAL CELL CARCINOMA
     Dosage: 990 MG , ONCE IN TWO WEEK.
     Route: 042
     Dates: start: 20100811, end: 20110524
  2. AFINITOR [Suspect]
     Indication: METASTATIC RENAL CELL CARCINOMA
     Dosage: 10 MG, QD
     Route: 048
     Dates: start: 20100811, end: 20110621
  3. AFINITOR [Suspect]
     Dosage: 10 MG, QD
     Route: 048
     Dates: start: 20110711, end: 20110811

REACTIONS (1)
  - FISTULA [None]
